FAERS Safety Report 19451663 (Version 1)
Quarter: 2021Q2

REPORT INFORMATION
  Report Type: Spontaneous
  Country: US (occurrence: US)
  Receive Date: 20210623
  Receipt Date: 20210623
  Transmission Date: 20210717
  Serious: No
  Sender: FDA-Public Use
  Company Number: US-ACCORD-222960

PATIENT
  Age: 30 Year
  Sex: Male
  Weight: 70.31 kg

DRUGS (1)
  1. CLONAZEPAM ACCORD [Suspect]
     Active Substance: CLONAZEPAM
     Indication: DEVELOPMENTAL DELAY
     Dosage: AS NEEDED
     Route: 048
     Dates: start: 20210331, end: 20210331

REACTIONS (3)
  - Abnormal behaviour [Recovering/Resolving]
  - Off label use [Unknown]
  - Product substitution issue [Unknown]
